FAERS Safety Report 6891438-1 (Version None)
Quarter: 2010Q3

REPORT INFORMATION
  Report Type: 
  Country: None (occurrence: None)
  Receive Date: 20100731
  Receipt Date: 20070820
  Transmission Date: 20110219
  Serious: Yes (Death, Other)
  Sender: FDA-Public Use
  Company Number: US-PFIZER INC-2007046062

PATIENT
  Sex: Male
  Weight: 68.9 kg

DRUGS (1)
  1. IRINOTECAN HCL [Suspect]
     Indication: SMALL CELL LUNG CANCER STAGE UNSPECIFIED
     Dosage: 21 DAY CYCLE
     Dates: start: 20070525

REACTIONS (2)
  - DIARRHOEA [None]
  - METASTASIS [None]
